FAERS Safety Report 5871184-3 (Version None)
Quarter: 2008Q3

REPORT INFORMATION
  Report Type: 
  Country: None (occurrence: None)
  Receive Date: 20080829
  Receipt Date: 20080820
  Transmission Date: 20090109
  Serious: Yes (Death, Disabling)
  Sender: FDA-Public Use
  Company Number: OSCN-PR-0704S-0157

PATIENT
  Age: 75 Year
  Sex: Male

DRUGS (3)
  1. OMNISCAN [Suspect]
     Indication: DRUG USE FOR UNKNOWN INDICATION
     Dosage: SINGLE DOSE, I.V.
     Route: 042
     Dates: start: 20050701, end: 20050701
  2. OMNISCAN [Suspect]
     Indication: DRUG USE FOR UNKNOWN INDICATION
     Dosage: SINGLE DOSE, I.V.
     Route: 042
     Dates: start: 20060801, end: 20060801
  3. EPOGEN [Concomitant]

REACTIONS (3)
  - INTERVERTEBRAL DISCITIS [None]
  - NEPHROGENIC SYSTEMIC FIBROSIS [None]
  - STAPHYLOCOCCAL INFECTION [None]
